FAERS Safety Report 24386527 (Version 1)
Quarter: 2024Q4

REPORT INFORMATION
  Report Type: Spontaneous
  Country: RU (occurrence: RU)
  Receive Date: 20241002
  Receipt Date: 20241002
  Transmission Date: 20250114
  Serious: Yes (Hospitalization, Other)
  Sender: ABBVIE
  Company Number: RU-ABBVIE-5942041

PATIENT
  Sex: Male

DRUGS (1)
  1. KALETRA [Suspect]
     Active Substance: LOPINAVIR\RITONAVIR
     Indication: HIV infection
     Route: 048
     Dates: start: 201706

REACTIONS (13)
  - Blindness [Recovering/Resolving]
  - Epilepsy [Unknown]
  - Facial paresis [Unknown]
  - Hemiparesis [Unknown]
  - Asthenia [Unknown]
  - Condition aggravated [Recovering/Resolving]
  - Vestibular ataxia [Unknown]
  - Disability [Unknown]
  - Movement disorder [Recovering/Resolving]
  - Visual impairment [Recovering/Resolving]
  - Arachnoid cyst [Unknown]
  - Pyrexia [Unknown]
  - Muscle spasms [Unknown]

NARRATIVE: CASE EVENT DATE: 20170101
